FAERS Safety Report 20129909 (Version 1)
Quarter: 2021Q4

REPORT INFORMATION
  Report Type: Spontaneous
  Country: US (occurrence: US)
  Receive Date: 20211130
  Receipt Date: 20211130
  Transmission Date: 20220304
  Serious: No
  Sender: FDA-Public Use
  Company Number: US-MYLANLABS-2021M1086124

PATIENT
  Age: 88 Year
  Sex: Female

DRUGS (1)
  1. LIDOCAINE PATCH [Suspect]
     Active Substance: LIDOCAINE
     Indication: Arthralgia
     Dosage: UNK
     Route: 003

REACTIONS (3)
  - Off label use [Unknown]
  - Product adhesion issue [Unknown]
  - Prescription drug used without a prescription [Unknown]
